FAERS Safety Report 22134763 (Version 1)
Quarter: 2023Q1

REPORT INFORMATION
  Report Type: Spontaneous
  Country: US (occurrence: None)
  Receive Date: 20230322
  Receipt Date: 20230322
  Transmission Date: 20230418
  Serious: No
  Sender: FDA-Public Use
  Company Number: None

PATIENT
  Age: 76 Year
  Sex: Female
  Weight: 86.36 kg

DRUGS (14)
  1. VERZENIO [Suspect]
     Active Substance: ABEMACICLIB
     Dosage: FREQUENCY : TWICE A DAY;?
     Route: 048
  2. ANASTROZOLE [Concomitant]
  3. ASPIRIN [Concomitant]
  4. CALCIUM [Concomitant]
     Active Substance: CALCIUM
  5. FOLIC ACID [Concomitant]
  6. HYDREA [Concomitant]
  7. LISINOPRIL [Concomitant]
  8. MAGNESIUM OXIDE [Concomitant]
  9. METHOTREXATE [Concomitant]
  10. MULTIVITAMIN [Concomitant]
  11. PROTONIX [Concomitant]
  12. TYLENOL [Concomitant]
  13. VITAMIN D3 [Concomitant]
  14. ZINC [Concomitant]

REACTIONS (2)
  - Full blood count abnormal [None]
  - Headache [None]
